FAERS Safety Report 24728525 (Version 1)
Quarter: 2024Q4

REPORT INFORMATION
  Report Type: Spontaneous
  Country: EG (occurrence: EG)
  Receive Date: 20241212
  Receipt Date: 20241212
  Transmission Date: 20250114
  Serious: Yes (Other)
  Sender: ELI LILLY AND COMPANY
  Company Number: EG-ELI_LILLY_AND_COMPANY-EG202412002975

PATIENT
  Age: 79 Year
  Sex: Female

DRUGS (4)
  1. HUMULIN 70/30 [Suspect]
     Active Substance: INSULIN HUMAN
     Indication: Diabetes mellitus
     Dosage: 30 INTERNATIONAL UNIT, EACH MORNING
     Route: 058
     Dates: start: 2000
  2. HUMULIN 70/30 [Suspect]
     Active Substance: INSULIN HUMAN
     Dosage: 15 INTERNATIONAL UNIT, EACH EVENING
     Route: 058
     Dates: start: 2000
  3. MIXTARD [INSULIN ISOPHANE NOS;INSULIN NOS] [Concomitant]
     Indication: Diabetes mellitus
  4. SODIUM BICARBONATE [Concomitant]
     Active Substance: SODIUM BICARBONATE
     Indication: Nephropathy

REACTIONS (1)
  - Cardiomegaly [Recovering/Resolving]

NARRATIVE: CASE EVENT DATE: 20240601
